FAERS Safety Report 8790868 (Version 1)
Quarter: 2012Q4

REPORT INFORMATION
  Report Type: Spontaneous
  Country: US (occurrence: None)
  Receive Date: 20120913
  Receipt Date: 20120913
  Transmission Date: 20130627
  Serious: Yes (Death)
  Sender: FDA-Public Use
  Company Number: None

PATIENT
  Age: 59 Year
  Sex: Male

DRUGS (1)
  1. PLERIXAFOR [Suspect]
     Indication: ACUTE MYELOID LEUKEMIA
     Dosage: 750mcg/kg/d qd IV
     Route: 042
     Dates: start: 20120827, end: 20120901

REACTIONS (6)
  - Septic shock [None]
  - Pneumonia bacterial [None]
  - Pulmonary haemorrhage [None]
  - Multi-organ failure [None]
  - Hypoxia [None]
  - Respiratory depression [None]
